FAERS Safety Report 5344213-3 (Version None)
Quarter: 2007Q2

REPORT INFORMATION
  Report Type: 
  Country: None (occurrence: None)
  Receive Date: 20070531
  Receipt Date: 20070531
  Transmission Date: 20071010
  Serious: No
  Sender: FDA-Public Use
  Company Number: None

PATIENT
  Age: 74 Year
  Sex: Female

DRUGS (2)
  1. AMBIEN [Suspect]
     Indication: SLEEP DISORDER THERAPY
     Dosage: PO
     Route: 048
     Dates: start: 20060701
  2. BENADRYL [Suspect]

REACTIONS (4)
  - CONFUSIONAL STATE [None]
  - DISORIENTATION [None]
  - HALLUCINATION [None]
  - NERVOUS SYSTEM DISORDER [None]
